FAERS Safety Report 12276844 (Version 1)
Quarter: 2016Q2

REPORT INFORMATION
  Report Type: Spontaneous
  Country: CN (occurrence: CN)
  Receive Date: 20160418
  Receipt Date: 20160418
  Transmission Date: 20160815
  Serious: Yes (Other)
  Sender: FDA-Public Use
  Company Number: CN-PFIZER INC-2016200746

PATIENT
  Age: 73 Year
  Sex: Male

DRUGS (1)
  1. XALKORI [Suspect]
     Active Substance: CRIZOTINIB
     Indication: LUNG NEOPLASM MALIGNANT
     Dosage: 500 MG, DAILY, 2 CAPSULES PER DAY (250MG X60 CAPSULES PER BOTTLE)
     Route: 048
     Dates: start: 2016

REACTIONS (1)
  - Cerebral thrombosis [Unknown]

NARRATIVE: CASE EVENT DATE: 2016
